FAERS Safety Report 7564402-7 (Version None)
Quarter: 2011Q2

REPORT INFORMATION
  Report Type: 
  Country: None (occurrence: None)
  Receive Date: 20110622
  Receipt Date: 20110610
  Transmission Date: 20111010
  Serious: Yes (Other)
  Sender: FDA-Public Use
  Company Number: PHHY2011NL18147

PATIENT
  Sex: Female

DRUGS (2)
  1. ZOMETA [Suspect]
     Indication: BREAST CANCER
     Dosage: 4 MG  PER 28 DAYS
     Route: 042
     Dates: start: 20101229
  2. ZOMETA [Suspect]
     Dosage: UNK
     Route: 042
     Dates: start: 20110221

REACTIONS (4)
  - TERMINAL STATE [None]
  - JOINT EFFUSION [None]
  - FLUID RETENTION [None]
  - DRUG INEFFECTIVE [None]
